FAERS Safety Report 8367212-6 (Version None)
Quarter: 2012Q2

REPORT INFORMATION
  Report Type: 
  Country: None (occurrence: None)
  Receive Date: 20120517
  Receipt Date: 20120511
  Transmission Date: 20120825
  Serious: Yes (Congenital Anomaly, Other)
  Sender: FDA-Public Use
  Company Number: GXKR2012DE001724

PATIENT

DRUGS (7)
  1. MELPERONE [Concomitant]
     Dosage: MATERNAL DOSE: 50 [MG/D ]
     Route: 064
     Dates: start: 20110418, end: 20110517
  2. LYRICA [Concomitant]
     Dosage: MATERNAL DOSE: 300 [MG/D ]/ STEP BY STEP REDUCTION FROM GW 3.1 TO 7.1
     Route: 064
     Dates: start: 20110418, end: 20110607
  3. LEVOTHYROXINE SODIUM [Concomitant]
     Dosage: MATERNAL DOSE: 50 [?G/D ]
     Route: 064
     Dates: start: 20110418, end: 20111230
  4. PROPRANOLOL [Concomitant]
     Indication: HYPERTENSION
     Dosage: MATERNAL DOSE: 20 [MG/D ]/ 10 MG IN THE LAST WEEK
     Route: 064
     Dates: start: 20110418, end: 20110526
  5. SEROQUEL [Suspect]
     Dosage: MATERNAL DOSE: 400 [MG/D ]
     Route: 064
     Dates: start: 20110418, end: 20111230
  6. FOLIC ACID [Concomitant]
     Indication: PROPHYLAXIS OF NEURAL TUBE DEFECT
     Dosage: MATERNAL DOSE: 0.4 [MG/D ]
     Route: 064
     Dates: start: 20110525
  7. CLOMIPRAMINE HCL [Suspect]
     Dosage: MATERNAL DOSE: 150 [MG/D(75-0-75) ]
     Route: 064

REACTIONS (5)
  - MYOCLONUS [None]
  - ATRIAL SEPTAL DEFECT [None]
  - FOETAL EXPOSURE DURING PREGNANCY [None]
  - CONVULSION [None]
  - FEEDING DISORDER NEONATAL [None]
